FAERS Safety Report 18637644 (Version 1)
Quarter: 2020Q4

REPORT INFORMATION
  Report Type: Spontaneous
  Country: CZ (occurrence: CZ)
  Receive Date: 20201219
  Receipt Date: 20201219
  Transmission Date: 20210114
  Serious: Yes (Other)
  Sender: FDA-Public Use
  Company Number: CZ-AUROBINDO-AUR-APL-2020-061214

PATIENT
  Age: 45 Year
  Sex: Female

DRUGS (2)
  1. FENTANYL. [Suspect]
     Active Substance: FENTANYL
     Indication: PAIN
     Dosage: UNK
     Route: 065
  2. TRAMADOL. [Suspect]
     Active Substance: TRAMADOL
     Indication: PAIN
     Dosage: UNK
     Route: 065

REACTIONS (6)
  - Nausea [Recovered/Resolved]
  - Drug dependence [Unknown]
  - Drug withdrawal syndrome [Unknown]
  - Product use issue [Unknown]
  - Vertigo [Recovered/Resolved]
  - Drug ineffective [Unknown]
